FAERS Safety Report 9846381 (Version 1)
Quarter: 2013Q4

REPORT INFORMATION
  Report Type: Spontaneous
  Country: US (occurrence: None)
  Receive Date: 20131223
  Receipt Date: 20131223
  Transmission Date: 20140711
  Serious: Yes (Other)
  Sender: FDA-Public Use
  Company Number: CABO-13003343

PATIENT
  Age: 45 Year
  Sex: Male

DRUGS (10)
  1. COMETRIQ [Suspect]
     Indication: THYROID CANCER
     Route: 048
     Dates: start: 20130211, end: 20130314
  2. SYNTHROID(LEVOTHYROXIN SODIUM) [Concomitant]
  3. LOSARTAN(LOSARTAN POTASSIUM) [Concomitant]
  4. METOPROLOL(METOPROLOL TARTRATE) [Concomitant]
  5. VITAMIN B(VITAMIN B COMPLEX) [Concomitant]
  6. VITAMIN E(HERBAL OIL NOS, TOCOPHEROL) [Concomitant]
  7. VITAMIN D (COLECALCIFEROL) [Concomitant]
  8. FISH OIL (FISH OIL) [Concomitant]
  9. TUMS(CALCIUM CARBONATE) [Concomitant]
  10. FLAXSEED OIL (LINUM USITATISSIMUM SEED OIL) [Concomitant]

REACTIONS (5)
  - Infection [None]
  - Fatigue [None]
  - Abdominal pain upper [None]
  - Pain in extremity [None]
  - Diarrhoea [None]
